FAERS Safety Report 14739454 (Version 5)
Quarter: 2018Q2

REPORT INFORMATION
  Report Type: Spontaneous
  Country: US (occurrence: US)
  Receive Date: 20180410
  Receipt Date: 20180514
  Transmission Date: 20180711
  Serious: No
  Sender: FDA-Public Use
  Company Number: US-LUNDBECK-DKLU2046805

PATIENT
  Sex: Female

DRUGS (2)
  1. NORTHERA [Suspect]
     Active Substance: DROXIDOPA
     Indication: AUTONOMIC NEUROPATHY
     Dosage: SCHEDULE B (TITRATION COMPLETE)
     Route: 065
     Dates: start: 20180324
  2. NORTHERA [Suspect]
     Active Substance: DROXIDOPA
     Indication: ORTHOSTATIC HYPOTENSION
     Route: 065

REACTIONS (10)
  - Headache [Recovered/Resolved]
  - Initial insomnia [Recovering/Resolving]
  - Blood pressure decreased [Unknown]
  - Dysstasia [Unknown]
  - Alanine aminotransferase increased [Unknown]
  - Hyperhidrosis [Recovering/Resolving]
  - Fatigue [Recovering/Resolving]
  - Tachycardia [Recovering/Resolving]
  - Hypotension [Not Recovered/Not Resolved]
  - Blood pressure diastolic decreased [Recovering/Resolving]
